FAERS Safety Report 8129785-8 (Version None)
Quarter: 2012Q1

REPORT INFORMATION
  Report Type: 
  Country: None (occurrence: None)
  Receive Date: 20120210
  Receipt Date: 20120210
  Transmission Date: 20120608
  Serious: Yes (Disabling)
  Sender: FDA-Public Use
  Company Number: None

PATIENT
  Age: 52 Year
  Sex: Male
  Weight: 81.646 kg

DRUGS (1)
  1. CLOZAPINE [Suspect]
     Indication: SCHIZOPHRENIA, PARANOID TYPE
     Dosage: 500MG
     Route: 048
     Dates: start: 20110803, end: 20110903

REACTIONS (6)
  - REFUSAL OF TREATMENT BY PATIENT [None]
  - EOSINOPHIL COUNT INCREASED [None]
  - EOSINOPHILIC MYOCARDITIS [None]
  - DRUG LEVEL INCREASED [None]
  - SYNCOPE [None]
  - ORTHOSTATIC HYPOTENSION [None]
